FAERS Safety Report 5415175-5 (Version None)
Quarter: 2007Q3

REPORT INFORMATION
  Report Type: 
  Country: None (occurrence: None)
  Receive Date: 20070815
  Receipt Date: 20070712
  Transmission Date: 20080115
  Serious: No
  Sender: FDA-Public Use
  Company Number: A0663713A

PATIENT
  Age: 66 Year
  Sex: Female

DRUGS (8)
  1. COREG CR [Suspect]
     Indication: HYPERTENSION
     Dosage: 20MG PER DAY
     Route: 048
     Dates: start: 20070710
  2. COZAAR [Concomitant]
  3. ZIAC [Concomitant]
  4. MAXZIDE [Concomitant]
  5. EVISTA [Concomitant]
  6. SYNTHROID [Concomitant]
  7. ZOCOR [Concomitant]
  8. XANAX [Concomitant]

REACTIONS (1)
  - BLOOD PRESSURE DECREASED [None]
